FAERS Safety Report 5463821-2 (Version None)
Quarter: 2007Q3

REPORT INFORMATION
  Report Type: 
  Country: None (occurrence: None)
  Receive Date: 20070919
  Receipt Date: 20070910
  Transmission Date: 20080115
  Serious: No
  Sender: FDA-Public Use
  Company Number: 20073980

PATIENT
  Age: 64 Year
  Sex: Male

DRUGS (1)
  1. LIORESAL [Suspect]
     Indication: MUSCLE SPASTICITY
     Dosage: 180-447 MCG, DAILY, INTRATHECAL-S
     Route: 037

REACTIONS (5)
  - ASTHENIA [None]
  - DISORIENTATION [None]
  - DRUG INEFFECTIVE [None]
  - PSYCHOTIC DISORDER [None]
  - UNEVALUABLE EVENT [None]
